FAERS Safety Report 11777978 (Version 6)
Quarter: 2016Q1

REPORT INFORMATION
  Report Type: Spontaneous
  Country: US (occurrence: US)
  Receive Date: 20151125
  Receipt Date: 20160309
  Transmission Date: 20160525
  Serious: Yes (Hospitalization, Other)
  Sender: FDA-Public Use
  Company Number: US-VERTEX PHARMACEUTICALS-2015-005398

PATIENT
  Age: 39 Year
  Sex: Female

DRUGS (26)
  1. AZITHROMYCIN ANHYDROUS. [Concomitant]
     Active Substance: AZITHROMYCIN ANHYDROUS
  2. CAYSTON [Concomitant]
     Active Substance: AZTREONAM
  3. SMZ-TMP [Concomitant]
     Active Substance: SULFAMETHOXAZOLE\TRIMETHOPRIM
  4. ORKAMBI [Suspect]
     Active Substance: IVACAFTOR\LUMACAFTOR
     Indication: CYSTIC FIBROSIS
     Dosage: 200MG/125MG, BID
     Route: 048
     Dates: start: 20151028, end: 20151110
  5. ALBUTEROL. [Concomitant]
     Active Substance: ALBUTEROL
  6. CLINDAMYCIN [Concomitant]
     Active Substance: CLINDAMYCIN\CLINDAMYCIN PHOSPHATE
  7. AMOXICILLIN. [Concomitant]
     Active Substance: AMOXICILLIN
  8. ZENPEP [Concomitant]
     Active Substance: PANCRELIPASE AMYLASE\PANCRELIPASE LIPASE\PANCRELIPASE PROTEASE
  9. CHLORHEX [Concomitant]
  10. RANITIDINE [Concomitant]
     Active Substance: RANITIDINE\RANITIDINE HYDROCHLORIDE
  11. BENADRYL [Concomitant]
     Active Substance: DIPHENHYDRAMINE HYDROCHLORIDE
  12. NORCO [Concomitant]
     Active Substance: ACETAMINOPHEN\HYDROCODONE BITARTRATE
  13. XANAX [Concomitant]
     Active Substance: ALPRAZOLAM
  14. TOBI [Concomitant]
     Active Substance: TOBRAMYCIN
  15. BRISDELLE [Concomitant]
     Active Substance: PAROXETINE MESYLATE
  16. ORKAMBI [Suspect]
     Active Substance: IVACAFTOR\LUMACAFTOR
     Dosage: 200MG/125MG, BID
     Route: 048
     Dates: start: 201511, end: 20160224
  17. AQUADEKS [Concomitant]
     Active Substance: MINERALS\VITAMINS
  18. LEVAQUIN [Concomitant]
     Active Substance: LEVOFLOXACIN
  19. BUDESONIDE. [Concomitant]
     Active Substance: BUDESONIDE
  20. VITAMIN D [Concomitant]
     Active Substance: CHOLECALCIFEROL
  21. MAGNESIUM [Concomitant]
     Active Substance: MAGNESIUM
  22. PROAIR HFA [Concomitant]
     Active Substance: ALBUTEROL SULFATE
  23. MEGESTROL [Concomitant]
     Active Substance: MEGESTROL
  24. MULTIVITAMIN [Concomitant]
     Active Substance: VITAMINS
  25. PRENATAL [Concomitant]
     Active Substance: VITAMINS
  26. HYDROCODONE BITARTRATE AND ACETAMINOPHEN [Concomitant]
     Active Substance: ACETAMINOPHEN\HYDROCODONE BITARTRATE

REACTIONS (10)
  - Fatigue [Unknown]
  - Nausea [Unknown]
  - Diarrhoea [Unknown]
  - Respiration abnormal [Unknown]
  - Hospitalisation [Not Recovered/Not Resolved]
  - Nasal congestion [Unknown]
  - Flatulence [Unknown]
  - Dyspnoea [Unknown]
  - Dizziness [Unknown]
  - Asthenia [Unknown]

NARRATIVE: CASE EVENT DATE: 20151028
